FAERS Safety Report 7284513-3 (Version None)
Quarter: 2011Q1

REPORT INFORMATION
  Report Type: 
  Country: None (occurrence: None)
  Receive Date: 20110209
  Receipt Date: 20110203
  Transmission Date: 20110831
  Serious: Yes (Death, Hospitalization)
  Sender: FDA-Public Use
  Company Number: CO-GENENTECH-313410

PATIENT
  Sex: Male

DRUGS (1)
  1. MABTHERA [Suspect]
     Indication: RHEUMATOID ARTHRITIS
     Dosage: 600 MG, UNK
     Route: 042
     Dates: start: 20101008

REACTIONS (4)
  - ABDOMINAL PAIN [None]
  - VOMITING [None]
  - CARDIOPULMONARY FAILURE [None]
  - ARTHRALGIA [None]
